FAERS Safety Report 15568344 (Version 2)
Quarter: 2019Q3

REPORT INFORMATION
  Report Type: Other
  Country: DE (occurrence: DE)
  Receive Date: 20181031
  Receipt Date: 20190703
  Transmission Date: 20191004
  Serious: No
  Sender: FDA-Public Use
  Company Number: DE-LUPIN PHARMACEUTICALS INC.-2018-04806

PATIENT
  Age: 88 Year
  Sex: Male

DRUGS (3)
  1. NOVAMINSULFON LICHTENSTEIN [Suspect]
     Active Substance: METAMIZOLE SODIUM
     Indication: PRODUCT USED FOR UNKNOWN INDICATION
     Dosage: UNK
     Route: 065
  2. SIMVASTATIN TABLETS [Suspect]
     Active Substance: SIMVASTATIN
     Indication: PRODUCT USED FOR UNKNOWN INDICATION
     Dosage: 0.5 DF, QD (10X DAILY FOR 5 DAYS)
     Route: 048
  3. SIMVASTATIN TABLETS [Suspect]
     Active Substance: SIMVASTATIN
     Dosage: 0.5 DF, QD (10X DAILY FOR 5 DAYS)
     Route: 048

REACTIONS (3)
  - Fatigue [Unknown]
  - Wrong product administered [Unknown]
  - Incorrect dose administered [Unknown]
